FAERS Safety Report 18921884 (Version 1)
Quarter: 2021Q1

REPORT INFORMATION
  Report Type: Spontaneous
  Country: US (occurrence: US)
  Receive Date: 20210220
  Receipt Date: 20210220
  Transmission Date: 20210420
  Serious: Yes (Other)
  Sender: FDA-Public Use
  Company Number: None

PATIENT
  Age: 22 Year
  Sex: Male
  Weight: 96.75 kg

DRUGS (6)
  1. MAGNESIUM [Concomitant]
     Active Substance: MAGNESIUM
  2. ALBUTEROL. [Suspect]
     Active Substance: ALBUTEROL
     Indication: ASTHMA
     Dosage: ?          QUANTITY:2 INHALATION(S);?
     Route: 055
     Dates: start: 20210209, end: 20210220
  3. CAFFEINE. [Concomitant]
     Active Substance: CAFFEINE
  4. L?THEANINE [Concomitant]
     Active Substance: DIETARY SUPPLEMENT
  5. GINGKO BILOBA [Concomitant]
     Active Substance: GINKGO
  6. PREDNISONE. [Suspect]
     Active Substance: PREDNISONE
     Indication: ASTHMA
     Dosage: ?          QUANTITY:7 TABLET(S);?
     Route: 048
     Dates: start: 20210209, end: 20210214

REACTIONS (5)
  - Asthenia [None]
  - Pain [None]
  - Back pain [None]
  - Insomnia [None]
  - Thirst [None]

NARRATIVE: CASE EVENT DATE: 20210217
